FAERS Safety Report 13066509 (Version 1)
Quarter: 2016Q4

REPORT INFORMATION
  Report Type: Spontaneous
  Country: US (occurrence: US)
  Receive Date: 20161227
  Receipt Date: 20161227
  Transmission Date: 20170207
  Serious: No
  Sender: FDA-Public Use
  Company Number: US-EAGLE PHARMACEUTICALS, INC.-US-2016EAG000709

PATIENT
  Sex: Male

DRUGS (1)
  1. BENDEKA [Suspect]
     Active Substance: BENDAMUSTINE HYDROCHLORIDE
     Indication: PRODUCT USED FOR UNKNOWN INDICATION
     Dosage: UNK, IN 50 ML DILUENT VIA A 10 MINUTE INFUSION
     Route: 042

REACTIONS (4)
  - Infusion site swelling [Unknown]
  - Infusion site reaction [Unknown]
  - Infusion site irritation [Unknown]
  - Infusion site pain [Unknown]
